FAERS Safety Report 8445928-0 (Version None)
Quarter: 2012Q2

REPORT INFORMATION
  Report Type: 
  Country: None (occurrence: None)
  Receive Date: 20120618
  Receipt Date: 20120612
  Transmission Date: 20120825
  Serious: Yes (Other)
  Sender: FDA-Public Use
  Company Number: IT-BAXTER-2011BH024869

PATIENT
  Sex: Male

DRUGS (7)
  1. LASIX [Concomitant]
     Route: 065
  2. CYCLOPHOSPHAMIDE [Suspect]
     Route: 042
     Dates: start: 20110701, end: 20110704
  3. VEPESID [Suspect]
     Route: 042
     Dates: start: 20110701, end: 20110704
  4. CLOFARABINE [Suspect]
     Route: 042
     Dates: start: 20110701, end: 20110704
  5. ZOFRAN [Concomitant]
     Route: 065
  6. NEUPOGEN [Concomitant]
     Route: 042
     Dates: start: 20110704, end: 20110726
  7. MESNA [Concomitant]
     Route: 065

REACTIONS (3)
  - EYELID OEDEMA [None]
  - MUSCULAR WEAKNESS [None]
  - OCULAR ICTERUS [None]
